FAERS Safety Report 25122415 (Version 1)
Quarter: 2025Q1

REPORT INFORMATION
  Report Type: Spontaneous
  Country: PL (occurrence: PL)
  Receive Date: 20250326
  Receipt Date: 20250326
  Transmission Date: 20250409
  Serious: Yes (Other)
  Sender: AMGEN
  Company Number: PL-AMGEN-POLSP2025056232

PATIENT
  Age: 48 Year

DRUGS (7)
  1. VECTIBIX [Suspect]
     Active Substance: PANITUMUMAB
     Indication: Colon cancer
     Route: 040
     Dates: start: 20190802
  2. VECTIBIX [Suspect]
     Active Substance: PANITUMUMAB
     Route: 040
  3. VECTIBIX [Suspect]
     Active Substance: PANITUMUMAB
     Route: 040
  4. OXALIPLATIN [Suspect]
     Active Substance: OXALIPLATIN
     Indication: Colon cancer
     Route: 040
     Dates: start: 20190802
  5. FLUOROURACIL [Suspect]
     Active Substance: FLUOROURACIL
     Indication: Colon cancer
     Route: 040
     Dates: start: 20190802
  6. FLUOROURACIL [Suspect]
     Active Substance: FLUOROURACIL
     Route: 040
     Dates: start: 20190802
  7. LEVOLEUCOVORIN DISODIUM [Suspect]
     Active Substance: LEVOLEUCOVORIN DISODIUM
     Indication: Colon cancer
     Route: 040

REACTIONS (2)
  - Polyneuropathy [Unknown]
  - Skin toxicity [Unknown]
